FAERS Safety Report 12186325 (Version 1)
Quarter: 2016Q1

REPORT INFORMATION
  Report Type: Other
  Country: ES (occurrence: ES)
  Receive Date: 20160317
  Receipt Date: 20160317
  Transmission Date: 20160526
  Serious: Yes (Hospitalization)
  Sender: FDA-Public Use
  Company Number: ES-LUPIN PHARMACEUTICALS INC.-2016-01019

PATIENT
  Age: 73 Year
  Sex: Male

DRUGS (3)
  1. LORAZEPAM. [Suspect]
     Active Substance: LORAZEPAM
     Indication: DEPRESSION
     Dosage: 5 MG
     Route: 065
  2. KETAZOLAM [Suspect]
     Active Substance: KETAZOLAM
     Indication: INSOMNIA
     Route: 065
  3. LORAZEPAM. [Suspect]
     Active Substance: LORAZEPAM
     Dosage: REDUCED DOSE
     Route: 065

REACTIONS (3)
  - Overdose [Unknown]
  - Fall [Unknown]
  - Femoral neck fracture [Unknown]
